FAERS Safety Report 13017669 (Version 1)
Quarter: 2016Q4

REPORT INFORMATION
  Report Type: Spontaneous
  Country: FR (occurrence: FR)
  Receive Date: 20161212
  Receipt Date: 20161212
  Transmission Date: 20170207
  Serious: Yes (Hospitalization)
  Sender: FDA-Public Use
  Company Number: FR-JNJFOC-20161205240

PATIENT
  Age: 62 Year
  Sex: Male

DRUGS (2)
  1. DUROGESIC [Suspect]
     Active Substance: FENTANYL
     Indication: CANCER PAIN
     Dosage: 300 ?G IN ONE INTAKE
     Route: 065
     Dates: start: 20160816
  2. MORPHINE [Suspect]
     Active Substance: MORPHINE
     Indication: CANCER PAIN
     Route: 065
     Dates: start: 20160816

REACTIONS (7)
  - Pallor [Unknown]
  - Overdose [Recovered/Resolved]
  - Hyperhidrosis [Unknown]
  - Cerebellar syndrome [Unknown]
  - Altered visual depth perception [Unknown]
  - Oxygen saturation decreased [Recovered/Resolved]
  - Clonus [Unknown]

NARRATIVE: CASE EVENT DATE: 20160816
